FAERS Safety Report 18305594 (Version 1)
Quarter: 2020Q3

REPORT INFORMATION
  Report Type: Spontaneous
  Country: US (occurrence: US)
  Receive Date: 20200923
  Receipt Date: 20200923
  Transmission Date: 20201103
  Serious: Yes (Hospitalization, Other)
  Sender: FDA-Public Use
  Company Number: US-TEVA-2020-US-1830451

PATIENT
  Sex: Male

DRUGS (1)
  1. FENTANYL. [Suspect]
     Active Substance: FENTANYL
     Indication: PRODUCT USE IN UNAPPROVED INDICATION
     Route: 065
     Dates: start: 2019

REACTIONS (10)
  - Gastric haemorrhage [Unknown]
  - Haematemesis [Unknown]
  - Near death experience [Unknown]
  - Overdose [Unknown]
  - Coma [Unknown]
  - Anxiety [Unknown]
  - Drug dependence [Unknown]
  - Hallucination [Unknown]
  - Drug diversion [Unknown]
  - Anger [Unknown]

NARRATIVE: CASE EVENT DATE: 2019
